FAERS Safety Report 4910292-8 (Version None)
Quarter: 2006Q1

REPORT INFORMATION
  Report Type: 
  Country: None (occurrence: None)
  Receive Date: 20060209
  Receipt Date: 20060130
  Transmission Date: 20060701
  Serious: Yes (Hospitalization)
  Sender: FDA-Public Use
  Company Number: 2005134908

PATIENT
  Age: 65 Year
  Sex: Female
  Weight: 73.4827 kg

DRUGS (11)
  1. SUTENT [Suspect]
     Indication: METASTATIC RENAL CELL CARCINOMA
     Dosage: 50 MG (50 MG, 1 IN 1 D), ORAL
     Route: 048
     Dates: start: 20050906
  2. VERAPAMIL [Concomitant]
  3. GLUCOVANCE [Concomitant]
  4. AVALIDE [Concomitant]
  5. PRAVACHOL [Concomitant]
  6. ACTONEL [Concomitant]
  7. VITAMIN C (VITAMIN C) [Concomitant]
  8. VITAMIN E [Concomitant]
  9. CALCIUM (CALCIUM) [Concomitant]
  10. K-DUR 10 [Concomitant]
  11. PEPCID AC [Concomitant]

REACTIONS (4)
  - CHILLS [None]
  - LOCALISED INFECTION [None]
  - RASH PAPULAR [None]
  - SEPSIS [None]
